FAERS Safety Report 13195106 (Version 1)
Quarter: 2017Q1

REPORT INFORMATION
  Report Type: Report from Study
  Country: IT (occurrence: IT)
  Receive Date: 20170207
  Receipt Date: 20170207
  Transmission Date: 20170428
  Serious: Yes (Death)
  Sender: FDA-Public Use
  Company Number: IT-ROCHE-1889203

PATIENT

DRUGS (1)
  1. RITUXIMAB [Suspect]
     Active Substance: RITUXIMAB
     Indication: CRYOGLOBULINAEMIA
     Dosage: TWICE 1 WEEK APART
     Route: 042

REACTIONS (4)
  - Neutropenia [Unknown]
  - Influenza like illness [Unknown]
  - Thrombophlebitis [Unknown]
  - Death [Fatal]
